FAERS Safety Report 5101278-1 (Version None)
Quarter: 2006Q3

REPORT INFORMATION
  Report Type: 
  Country: None (occurrence: None)
  Receive Date: 20060906
  Receipt Date: 20060824
  Transmission Date: 20061208
  Serious: Yes (Other)
  Sender: FDA-Public Use
  Company Number: 2006JP002535

PATIENT
  Age: 76 Year
  Sex: Female

DRUGS (10)
  1. VESICARE [Suspect]
     Indication: HYPERTONIC BLADDER
     Dosage: 5MG, UID/QD, ORAL
     Route: 048
     Dates: start: 20060803, end: 20060803
  2. ALPRAZOLAM [Concomitant]
  3. PRAVASTATIN [Concomitant]
  4. WARFARIN SODIUM [Concomitant]
  5. AMLODIPINE BESYLATE [Concomitant]
  6. PROTECADIN (LAFUTIDINE) [Concomitant]
  7. DIOVAN [Concomitant]
  8. KAMAG G (MAGNESIUM OXIDE) [Concomitant]
  9. SUNRYTHM (PILSICAINIDE HYDROCHLORIDE) [Concomitant]
  10. MUCOSTA (REBAMIPIDE) [Concomitant]

REACTIONS (3)
  - CYSTITIS HAEMORRHAGIC [None]
  - INSOMNIA [None]
  - URINARY RETENTION [None]
